FAERS Safety Report 19756072 (Version 2)
Quarter: 2021Q3

REPORT INFORMATION
  Report Type: Report from Study
  Country: None (occurrence: FR)
  Receive Date: 20210827
  Receipt Date: 20210928
  Transmission Date: 20211014
  Serious: Yes (Hospitalization, Other)
  Sender: FDA-Public Use
  Company Number: FR-ABBVIE-21K-056-4056958-00

PATIENT
  Age: 81 Year
  Sex: Male

DRUGS (2)
  1. DUODOPA [Suspect]
     Active Substance: CARBIDOPA\LEVODOPA
     Indication: PARKINSON^S DISEASE
     Dosage: MD:11 ML; CONTINUOUS FLOW RATE DURING THE DAY: 6,2 ML/H;ED:3 ML, 3 TIMES PER DAY
     Route: 050
     Dates: start: 2019
  2. DUODOPA [Suspect]
     Active Substance: CARBIDOPA\LEVODOPA

REACTIONS (2)
  - General physical health deterioration [Not Recovered/Not Resolved]
  - Terminal state [Unknown]
